FAERS Safety Report 4865933-0 (Version None)
Quarter: 2005Q4

REPORT INFORMATION
  Report Type: 
  Country: None (occurrence: None)
  Receive Date: 20051226
  Receipt Date: 20051215
  Transmission Date: 20060501
  Serious: Yes (Other)
  Sender: FDA-Public Use
  Company Number: PHMT2005CA00829

PATIENT
  Sex: Female

DRUGS (3)
  1. COMBIPATCH [Suspect]
     Dosage: 250/50
     Route: 062
     Dates: start: 20020101
  2. VIVELLE [Suspect]
  3. PROMETRIUM [Suspect]

REACTIONS (4)
  - BREAST DYSPLASIA [None]
  - HYPERTENSION [None]
  - UTERINE LEIOMYOMA [None]
  - VAGINAL HAEMORRHAGE [None]
